FAERS Safety Report 6288804-4 (Version None)
Quarter: 2009Q3

REPORT INFORMATION
  Report Type: 
  Country: None (occurrence: None)
  Receive Date: 20090729
  Receipt Date: 20090717
  Transmission Date: 20100115
  Serious: Yes (Hospitalization)
  Sender: FDA-Public Use
  Company Number: JP-PFIZER INC-2009223155

PATIENT
  Age: 73 Year

DRUGS (11)
  1. SELARA [Suspect]
     Indication: CARDIAC FAILURE
     Dosage: 25 MBQ, 1X/DAY
     Route: 048
     Dates: start: 20090410
  2. NU LOTAN [Concomitant]
     Dosage: UNK
     Route: 048
  3. ARTIST [Concomitant]
     Dosage: UNK
     Route: 048
     Dates: start: 20090317
  4. LASIX [Concomitant]
     Dosage: UNK
     Route: 048
     Dates: start: 20090317
  5. WARFARIN [Concomitant]
     Dosage: UNK
     Route: 048
     Dates: start: 20090317
  6. ZYLORIC ^FAES^ [Concomitant]
     Dosage: UNK
     Route: 048
  7. ASPIRIN [Concomitant]
     Dosage: UNK
     Route: 048
     Dates: start: 20090317
  8. PARIET [Concomitant]
     Dosage: UNK
     Route: 048
     Dates: start: 20090317
  9. AMARYL [Concomitant]
     Dosage: UNK
     Route: 048
     Dates: start: 20090325
  10. MIGLITOL [Concomitant]
     Dosage: UNK
     Route: 048
     Dates: start: 20090328
  11. MAG-LAX [Suspect]
     Dosage: UNK
     Route: 048
     Dates: start: 20090317

REACTIONS (3)
  - BREAST PAIN [None]
  - GYNAECOMASTIA [None]
  - UNEVALUABLE EVENT [None]
